FAERS Safety Report 19079786 (Version 1)
Quarter: 2021Q1

REPORT INFORMATION
  Report Type: Spontaneous
  Country: IT (occurrence: IT)
  Receive Date: 20210331
  Receipt Date: 20210331
  Transmission Date: 20210420
  Serious: Yes (Life-Threatening, Other)
  Sender: FDA-Public Use
  Company Number: IT-VALIDUS PHARMACEUTICALS LLC-IT-2021VAL000270

PATIENT
  Age: 70 Year
  Sex: Male

DRUGS (2)
  1. NITROPRUSSIDE [Suspect]
     Active Substance: NITROPRUSSIDE
     Indication: FLUID OVERLOAD
     Dosage: UNK
     Route: 065
  2. FUROSEMIDE. [Suspect]
     Active Substance: FUROSEMIDE
     Indication: FLUID OVERLOAD
     Dosage: 500 MG, QD HIGH DOSE, LOOP DIRUETICS
     Route: 042

REACTIONS (4)
  - Hypotension [Recovered/Resolved]
  - Condition aggravated [Recovered/Resolved]
  - Renal impairment [Recovered/Resolved]
  - Drug ineffective [Recovered/Resolved]
